FAERS Safety Report 10026054 (Version 1)
Quarter: 2014Q1

REPORT INFORMATION
  Report Type: Spontaneous
  Country: US (occurrence: US)
  Receive Date: 20140320
  Receipt Date: 20140320
  Transmission Date: 20141002
  Serious: No
  Sender: FDA-Public Use
  Company Number: US-GILEAD-2014-0097192

PATIENT
  Sex: Female

DRUGS (3)
  1. TYVASO [Concomitant]
  2. RIOCIGUAT [Concomitant]
  3. LETAIRIS [Suspect]
     Indication: PRODUCT USED FOR UNKNOWN INDICATION
     Dosage: 10 MG, QD
     Route: 048
     Dates: start: 20111019

REACTIONS (1)
  - Dyspnoea exertional [Unknown]
